FAERS Safety Report 6443316-X (Version None)
Quarter: 2009Q4

REPORT INFORMATION
  Report Type: 
  Country: None (occurrence: None)
  Receive Date: 20091112
  Receipt Date: 20091102
  Transmission Date: 20100525
  Serious: Yes (Other)
  Sender: FDA-Public Use
  Company Number: ADR47212009

PATIENT
  Age: 55 Year
  Sex: Male

DRUGS (3)
  1. SIMVASTATIN [Suspect]
     Dosage: 40 MG, 1/1 DAYS;
  2. ATORVASTATIN [Concomitant]
  3. FLUOXETINE [Concomitant]

REACTIONS (2)
  - CLONIC CONVULSION [None]
  - PARTIAL SEIZURES [None]
